FAERS Safety Report 12779481 (Version 1)
Quarter: 2016Q3

REPORT INFORMATION
  Report Type: Spontaneous
  Country: None (occurrence: None)
  Receive Date: 20160923
  Receipt Date: 20160923
  Transmission Date: 20161109
  Serious: Yes (Life-Threatening, Hospitalization)
  Sender: FDA-Public Use
  Company Number: IT-ALSI-201600246

PATIENT
  Sex: Female

DRUGS (2)
  1. OSSIGENO AIR LIQUIDE SANITA^ GAS MEDICINALE CRIOGENICO OXYGEN [Suspect]
     Active Substance: OXYGEN
     Indication: PRODUCT USED FOR UNKNOWN INDICATION
     Route: 055
  2. OSSIGENO AIR LIQUIDE SANITA^ GAS MEDICINALE CRIOGENICO OXYGEN [Suspect]
     Active Substance: OXYGEN
     Indication: PRODUCT USED FOR UNKNOWN INDICATION
     Route: 055

REACTIONS (2)
  - Thermal burn [None]
  - Intentional product misuse [None]

NARRATIVE: CASE EVENT DATE: 20160912
